FAERS Safety Report 8775121 (Version 1)
Quarter: 2012Q4

REPORT INFORMATION
  Report Type: Report from Study
  Country: US (occurrence: US)
  Receive Date: 20120910
  Receipt Date: 20120910
  Transmission Date: 20130627
  Serious: Yes (Hospitalization)
  Sender: FDA-Public Use
  Company Number: US-ROCHE-1115970

PATIENT
  Age: 50 Year
  Sex: Female
  Weight: 81.72 kg

DRUGS (7)
  1. OMALIZUMAB [Suspect]
     Indication: ASTHMA
     Dosage: 1 injection
     Route: 058
     Dates: start: 20120731, end: 20120731
  2. FEXOFENADINE [Concomitant]
     Indication: PRODUCT USED FOR UNKNOWN INDICATION
  3. OMNARIS [Concomitant]
     Indication: PRODUCT USED FOR UNKNOWN INDICATION
  4. ASTEPRO [Concomitant]
     Indication: PRODUCT USED FOR UNKNOWN INDICATION
  5. ALBUTEROL [Concomitant]
     Indication: PRODUCT USED FOR UNKNOWN INDICATION
  6. QVAR [Concomitant]
     Indication: PRODUCT USED FOR UNKNOWN INDICATION
  7. ADVAIR [Concomitant]

REACTIONS (5)
  - Throat tightness [Recovered/Resolved]
  - Cough [Recovered/Resolved]
  - Pruritus [Recovered/Resolved]
  - Asthma [Not Recovered/Not Resolved]
  - Candidiasis [Not Recovered/Not Resolved]
